FAERS Safety Report 8239377-8 (Version None)
Quarter: 2012Q1

REPORT INFORMATION
  Report Type: 
  Country: None (occurrence: None)
  Receive Date: 20120326
  Receipt Date: 20120313
  Transmission Date: 20120608
  Serious: Yes (Hospitalization)
  Sender: FDA-Public Use
  Company Number: EU-2012-10093

PATIENT
  Sex: Male

DRUGS (1)
  1. PLETAL [Suspect]

REACTIONS (2)
  - HEART RATE INCREASED [None]
  - TREMOR [None]
